FAERS Safety Report 24266935 (Version 1)
Quarter: 2024Q3

REPORT INFORMATION
  Report Type: Report from Study
  Country: US (occurrence: US)
  Receive Date: 20240830
  Receipt Date: 20240830
  Transmission Date: 20241017
  Serious: Yes (Death)
  Sender: ABBVIE
  Company Number: US-ABBVIE-5898158

PATIENT
  Sex: Female

DRUGS (1)
  1. RESTASIS [Suspect]
     Active Substance: CYCLOSPORINE
     Indication: Corneal dystrophy
     Dosage: 0.05%?0.5MG/ML
     Route: 047

REACTIONS (2)
  - Death [Fatal]
  - Off label use [Not Recovered/Not Resolved]
